FAERS Safety Report 18914523 (Version 1)
Quarter: 2021Q1

REPORT INFORMATION
  Report Type: Spontaneous
  Country: SA (occurrence: SA)
  Receive Date: 20210219
  Receipt Date: 20210219
  Transmission Date: 20210420
  Serious: Yes (Life-Threatening, Hospitalization, Other)
  Sender: FDA-Public Use
  Company Number: SA-ACCORD-217510

PATIENT
  Age: 31 Year
  Sex: Male

DRUGS (5)
  1. RISPERIDONE. [Concomitant]
     Active Substance: RISPERIDONE
     Indication: SCHIZOPHRENIA
  2. CLOZAPINE. [Suspect]
     Active Substance: CLOZAPINE
     Indication: SCHIZOPHRENIA
     Dosage: TOTAL DOSE OF 200 MG/DAY BY THE END OF THE SECOND WEEK OF HOSPITALIZATION
  3. CLOZAPINE. [Suspect]
     Active Substance: CLOZAPINE
     Indication: SCHIZOPHRENIA
  4. QUETIAPINE/QUETIAPINE FUMARATE [Concomitant]
     Active Substance: QUETIAPINE FUMARATE
     Indication: SCHIZOPHRENIA
  5. CLOZAPINE. [Suspect]
     Active Substance: CLOZAPINE
     Indication: SCHIZOPHRENIA
     Dosage: DOSING INCREASING

REACTIONS (3)
  - Sinus tachycardia [Recovered/Resolved]
  - Stress cardiomyopathy [Recovered/Resolved]
  - Ventricular hypokinesia [Recovered/Resolved]
